FAERS Safety Report 13372272 (Version 1)
Quarter: 2017Q1

REPORT INFORMATION
  Report Type: Other
  Country: US (occurrence: US)
  Receive Date: 20170327
  Receipt Date: 20170327
  Transmission Date: 20170429
  Serious: No
  Sender: FDA-Public Use
  Company Number: US-INTERPRAG-PM-OCA2017-00012

PATIENT

DRUGS (4)
  1. OCALIVA [Suspect]
     Active Substance: OBETICHOLIC ACID
     Indication: BILIARY CIRRHOSIS PRIMARY
     Dosage: UNK
     Dates: start: 201608
  2. PROAIR HFA [Concomitant]
     Active Substance: ALBUTEROL SULFATE
  3. OCALIVA [Suspect]
     Active Substance: OBETICHOLIC ACID
     Dosage: 1 UNK, QD
     Route: 048
     Dates: start: 201609
  4. URSODIOL. [Concomitant]
     Active Substance: URSODIOL

REACTIONS (3)
  - Eye swelling [Unknown]
  - Pruritus [Unknown]
  - Rash [Unknown]
